FAERS Safety Report 9863881 (Version 2)
Quarter: 2014Q1

REPORT INFORMATION
  Report Type: Report from Study
  Country: JP (occurrence: JP)
  Receive Date: 20140203
  Receipt Date: 20140325
  Transmission Date: 20141002
  Serious: Yes (Death, Life-Threatening)
  Sender: FDA-Public Use
  Company Number: JP-GLAXOSMITHKLINE-B0965151A

PATIENT
  Age: 53 Year
  Sex: Female
  Weight: 47 kg

DRUGS (2)
  1. VOTRIENT 200MG [Suspect]
     Indication: LIPOSARCOMA
     Dosage: 400MG PER DAY
     Route: 048
     Dates: start: 20140115, end: 20140125
  2. TRAMCET [Concomitant]
     Indication: LIPOSARCOMA
     Route: 048

REACTIONS (3)
  - Gastrointestinal perforation [Fatal]
  - Bone marrow failure [Not Recovered/Not Resolved]
  - Hypertension [Recovered/Resolved]
